FAERS Safety Report 11467043 (Version 3)
Quarter: 2016Q1

REPORT INFORMATION
  Report Type: Spontaneous
  Country: US (occurrence: US)
  Receive Date: 20150908
  Receipt Date: 20160329
  Transmission Date: 20160525
  Serious: Yes (Other)
  Sender: FDA-Public Use
  Company Number: US-009507513-1508USA013304

PATIENT
  Age: 23 Year
  Sex: Female
  Weight: 85.71 kg

DRUGS (1)
  1. NEXPLANON [Suspect]
     Active Substance: ETONOGESTREL
     Indication: CONTRACEPTION
     Dosage: 68MG/ONE ROD PER 3 YEARS
     Route: 059
     Dates: start: 20140918, end: 20150824

REACTIONS (4)
  - Feeling abnormal [Recovered/Resolved]
  - Menstrual disorder [Recovered/Resolved]
  - Hypoaesthesia [Recovered/Resolved]
  - Device breakage [Recovered/Resolved]

NARRATIVE: CASE EVENT DATE: 201504
